FAERS Safety Report 5163305-5 (Version None)
Quarter: 2006Q4

REPORT INFORMATION
  Report Type: 
  Country: None (occurrence: None)
  Receive Date: 20061121
  Receipt Date: 20061109
  Transmission Date: 20070319
  Serious: Yes (Other)
  Sender: FDA-Public Use
  Company Number: 2006138571

PATIENT
  Sex: Male

DRUGS (1)
  1. VISINE (OXYMETAZOLINE) [Suspect]
     Dosage: ORAL
     Route: 048

REACTIONS (3)
  - ACCIDENTAL EXPOSURE [None]
  - DYSARTHRIA [None]
  - SOMNOLENCE [None]
